FAERS Safety Report 7633019-8 (Version None)
Quarter: 2011Q3

REPORT INFORMATION
  Report Type: 
  Country: None (occurrence: None)
  Receive Date: 20110725
  Receipt Date: 20110722
  Transmission Date: 20111222
  Serious: Yes (Other)
  Sender: FDA-Public Use
  Company Number: US-PFIZER INC-2011167400

PATIENT
  Sex: Male

DRUGS (1)
  1. CHANTIX [Suspect]
     Indication: DRUG WITHDRAWAL SYNDROME
     Dosage: UNK
     Dates: start: 20100101, end: 20100101

REACTIONS (3)
  - POST-TRAUMATIC STRESS DISORDER [None]
  - ANXIETY [None]
  - DRUG WITHDRAWAL SYNDROME [None]
